FAERS Safety Report 7399739-8 (Version None)
Quarter: 2011Q2

REPORT INFORMATION
  Report Type: 
  Country: None (occurrence: None)
  Receive Date: 20110407
  Receipt Date: 20110311
  Transmission Date: 20111010
  Serious: Yes (Hospitalization)
  Sender: FDA-Public Use
  Company Number: US-BAYER-201041141NA

PATIENT
  Sex: Female
  Weight: 81.633 kg

DRUGS (8)
  1. NASONEX [Concomitant]
  2. TOPAMAX [Concomitant]
  3. ALLEGRA [Concomitant]
  4. YASMIN [Suspect]
     Indication: ACNE
  5. FEXOFENADINE [Concomitant]
  6. OMEPRAZOLE [Concomitant]
  7. IBUPROFEN [Concomitant]
  8. NSAID'S [Concomitant]

REACTIONS (1)
  - PULMONARY EMBOLISM [None]
